FAERS Safety Report 5314904-9 (Version None)
Quarter: 2007Q2

REPORT INFORMATION
  Report Type: 
  Country: None (occurrence: None)
  Receive Date: 20070426
  Receipt Date: 20070417
  Transmission Date: 20071010
  Serious: Yes (Hospitalization)
  Sender: FDA-Public Use
  Company Number: 231855K07USA

PATIENT
  Age: 58 Year
  Sex: Male
  Weight: 73.4827 kg

DRUGS (3)
  1. REBIF [Suspect]
     Indication: MULTIPLE SCLEROSIS
     Dosage: 44 MCG; 3 IN 1 WEEKS, SUBCUTANEOUS
     Route: 058
     Dates: start: 20051014
  2. DIOVAN [Concomitant]
  3. MEVACOR [Concomitant]

REACTIONS (6)
  - CHEST PAIN [None]
  - MULTIPLE FRACTURES [None]
  - RIB FRACTURE [None]
  - ROAD TRAFFIC ACCIDENT [None]
  - SOMNOLENCE [None]
  - STERNAL FRACTURE [None]
